FAERS Safety Report 4862702-2 (Version None)
Quarter: 2005Q4

REPORT INFORMATION
  Report Type: 
  Country: None (occurrence: None)
  Receive Date: 20051221
  Receipt Date: 20050826
  Transmission Date: 20060501
  Serious: Yes (Other)
  Sender: FDA-Public Use
  Company Number: US-MERCK-0508USA04378

PATIENT
  Sex: Female
  Weight: 75 kg

DRUGS (2)
  1. MAXALT-MLT [Suspect]
     Indication: MIGRAINE
     Route: 048
     Dates: start: 20050101, end: 20050101
  2. INSULIN [Concomitant]
     Indication: DIABETES MELLITUS INSULIN-DEPENDENT
     Route: 065

REACTIONS (3)
  - EYELID DISORDER [None]
  - PARAESTHESIA [None]
  - THROAT IRRITATION [None]
